FAERS Safety Report 19666147 (Version 1)
Quarter: 2021Q3

REPORT INFORMATION
  Report Type: Spontaneous
  Country: US (occurrence: US)
  Receive Date: 20210805
  Receipt Date: 20210805
  Transmission Date: 20211014
  Serious: No
  Sender: FDA-Public Use
  Company Number: US-SA-2021SA259173

PATIENT
  Sex: Male

DRUGS (1)
  1. AUBAGIO [Suspect]
     Active Substance: TERIFLUNOMIDE
     Indication: MULTIPLE SCLEROSIS
     Dosage: 14 MG DAILY
     Route: 048
     Dates: start: 20210609

REACTIONS (8)
  - Abdominal pain [Not Recovered/Not Resolved]
  - Fatigue [Not Recovered/Not Resolved]
  - Movement disorder [Not Recovered/Not Resolved]
  - Nausea [Not Recovered/Not Resolved]
  - Fall [Not Recovered/Not Resolved]
  - Musculoskeletal stiffness [Not Recovered/Not Resolved]
  - Visual impairment [Not Recovered/Not Resolved]
  - Diarrhoea [Not Recovered/Not Resolved]
